FAERS Safety Report 15766646 (Version 3)
Quarter: 2018Q4

REPORT INFORMATION
  Report Type: Spontaneous
  Country: DE (occurrence: DE)
  Receive Date: 20181227
  Receipt Date: 20181231
  Transmission Date: 20190205
  Serious: Yes (Other)
  Sender: FDA-Public Use
  Company Number: DE-PFIZER INC-2018523369

PATIENT
  Age: 35 Year
  Sex: Female

DRUGS (5)
  1. TAVOR [Concomitant]
     Indication: DEPRESSION
     Dosage: 2-6 MG DAILY. OTHER INDICATION: AGITATION
     Route: 048
     Dates: start: 20100325, end: 20100328
  2. MIRTAZAPINE. [Suspect]
     Active Substance: MIRTAZAPINE
     Indication: DEPRESSION
     Dosage: 7.5 MG, QD
     Route: 048
     Dates: start: 20100324, end: 20100329
  3. ZELDOX [Suspect]
     Active Substance: ZIPRASIDONE
     Indication: SCHIZOPHRENIA
     Dosage: 100 MG, QD
     Route: 048
     Dates: start: 20100326, end: 20100331
  4. ZELDOX [Suspect]
     Active Substance: ZIPRASIDONE
     Dosage: 80 MG, QD
     Route: 048
  5. TAVOR [Concomitant]
     Dosage: 10 MG, DAILY
     Route: 048
     Dates: start: 20100329, end: 20100406

REACTIONS (3)
  - Restlessness [Recovered/Resolved]
  - Suicide attempt [Recovered/Resolved]
  - Suicidal ideation [Recovered/Resolved]

NARRATIVE: CASE EVENT DATE: 201003
